FAERS Safety Report 6452001-X (Version None)
Quarter: 2009Q4

REPORT INFORMATION
  Report Type: 
  Country: None (occurrence: None)
  Receive Date: 20091123
  Receipt Date: 20091110
  Transmission Date: 20100525
  Serious: Yes (Other)
  Sender: FDA-Public Use
  Company Number: PHHY2009CA49355

PATIENT
  Sex: Female

DRUGS (4)
  1. CLOZARIL [Suspect]
     Dosage: UNK
     Dates: start: 20091022
  2. CLOZARIL [Suspect]
     Dosage: 75 MG, BID
     Dates: start: 20091105
  3. CLOZARIL [Suspect]
     Dosage: 50 MG IN THE A.M. AND INCREASED TO 75 MG IN THE P.M
     Dates: start: 20091106
  4. MONOCOR [Concomitant]

REACTIONS (4)
  - ATRIAL FLUTTER [None]
  - COGNITIVE DISORDER [None]
  - SOMNOLENCE [None]
  - TACHYCARDIA [None]
